FAERS Safety Report 4938809-8 (Version None)
Quarter: 2006Q1

REPORT INFORMATION
  Report Type: 
  Country: None (occurrence: None)
  Receive Date: 20060306
  Receipt Date: 20060224
  Transmission Date: 20060701
  Serious: Yes (Life-Threatening, Hospitalization)
  Sender: FDA-Public Use
  Company Number: 2005-12-0972

PATIENT
  Age: 69 Year
  Sex: Female
  Weight: 95.2554 kg

DRUGS (2)
  1. TEMODAR [Suspect]
     Indication: GLIOBLASTOMA MULTIFORME
     Dosage: 160MG QD ORAL
     Route: 048
     Dates: start: 20051129
  2. RADIATION THERAPY [Concomitant]

REACTIONS (1)
  - PULMONARY EMBOLISM [None]
